FAERS Safety Report 20966509 (Version 1)
Quarter: 2022Q2

REPORT INFORMATION
  Report Type: Spontaneous
  Country: US (occurrence: None)
  Receive Date: 20220615
  Receipt Date: 20220615
  Transmission Date: 20220721
  Serious: Yes (Death)
  Sender: FDA-Public Use
  Company Number: None

PATIENT
  Age: 76 Year
  Sex: Male
  Weight: 82.55 kg

DRUGS (5)
  1. AZACITIDINE [Suspect]
     Active Substance: AZACITIDINE
     Indication: Myelodysplastic syndrome
     Dosage: OTHER FREQUENCY : D1-7 OF 28DAY;?
     Route: 058
  2. DACOGEN [Concomitant]
     Active Substance: DECITABINE
  3. NPLATE [Concomitant]
     Active Substance: ROMIPLOSTIM
  4. PROCRIT [Concomitant]
     Active Substance: ERYTHROPOIETIN
  5. ZARXIO [Concomitant]
     Active Substance: FILGRASTIM-SNDZ

REACTIONS (1)
  - Death [None]
